FAERS Safety Report 24608404 (Version 1)
Quarter: 2024Q4

REPORT INFORMATION
  Report Type: Spontaneous
  Country: AU (occurrence: AU)
  Receive Date: 20241112
  Receipt Date: 20241112
  Transmission Date: 20250115
  Serious: Yes (Hospitalization, Other)
  Sender: MYLAN
  Company Number: AU-MYLANLABS-2024M1100580

PATIENT
  Sex: Female

DRUGS (2)
  1. VENLAFAXINE HYDROCHLORIDE [Suspect]
     Active Substance: VENLAFAXINE HYDROCHLORIDE
     Indication: Product used for unknown indication
     Dosage: 350 MILLIGRAM (350MG FOR A MONTH)
     Route: 065
  2. VENLAFAXINE HYDROCHLORIDE [Suspect]
     Active Substance: VENLAFAXINE HYDROCHLORIDE
     Dosage: 75 MILLIGRAM
     Route: 065

REACTIONS (6)
  - Suicidal ideation [Unknown]
  - Mental disorder [Unknown]
  - Gait inability [Unknown]
  - Malaise [Unknown]
  - Somnolence [Unknown]
  - Intentional product misuse [Unknown]
